FAERS Safety Report 9381991 (Version 1)
Quarter: 2013Q3

REPORT INFORMATION
  Report Type: Spontaneous
  Country: AU (occurrence: AU)
  Receive Date: 20130703
  Receipt Date: 20130703
  Transmission Date: 20140515
  Serious: Yes (Other)
  Sender: FDA-Public Use
  Company Number: AU-ASTRAZENECA-2013SE49064

PATIENT
  Sex: 0

DRUGS (2)
  1. ATACAND [Suspect]
     Route: 048
  2. PICOPREP [Concomitant]

REACTIONS (1)
  - Hyponatraemic encephalopathy [Recovered/Resolved]
